FAERS Safety Report 22850194 (Version 12)
Quarter: 2024Q3

REPORT INFORMATION
  Report Type: Spontaneous
  Country: ES (occurrence: ES)
  Receive Date: 20230822
  Receipt Date: 20240709
  Transmission Date: 20241016
  Serious: Yes (Death, Hospitalization, Other)
  Sender: MYLAN
  Company Number: ES-BRISTOL-MYERS SQUIBB COMPANY-2023-104804

PATIENT
  Age: 67 Year
  Sex: Male

DRUGS (9)
  1. LENALIDOMIDE [Suspect]
     Active Substance: LENALIDOMIDE
     Indication: Plasma cell myeloma
     Dosage: 5 MILLIGRAM, QD (2 CYCLES), MAINTENANCE
     Route: 048
  2. LENALIDOMIDE [Suspect]
     Active Substance: LENALIDOMIDE
     Indication: Allogenic stem cell transplantation
     Dosage: 10 MG, QD (2 CYCLES), MAINTENANCE
     Route: 048
  3. LENALIDOMIDE [Suspect]
     Active Substance: LENALIDOMIDE
     Dosage: UNK, 4 CYCLICAL
     Route: 065
  4. BORTEZOMIB [Suspect]
     Active Substance: BORTEZOMIB
     Indication: Plasma cell myeloma
     Dosage: UNK
     Route: 065
  5. THALIDOMIDE [Suspect]
     Active Substance: THALIDOMIDE
     Indication: Plasma cell myeloma
     Dosage: UNK, VTD (BORTEZOMIB + THALIDOMIDE + DEXAMETHASONE)
     Route: 065
  6. DEXAMETHASONE [Suspect]
     Active Substance: DEXAMETHASONE
     Indication: Allogenic stem cell transplantation
     Dosage: LENALIDOMIDE AND DEXAMETHASONE (RD) FOR 4 CYCLES
     Route: 065
  7. DEXAMETHASONE [Suspect]
     Active Substance: DEXAMETHASONE
     Indication: Plasma cell myeloma
     Dosage: VTD (BORTEZOMIB + THALIDOMIDE + DEXAMETHASONE)
     Route: 065
  8. DEXAMETHASONE [Suspect]
     Active Substance: DEXAMETHASONE
     Dosage: UNK, 4 CYCLICAL
     Route: 065
  9. MELPHALAN [Concomitant]
     Active Substance: MELPHALAN
     Indication: Plasma cell myeloma
     Dosage: UNK
     Route: 065

REACTIONS (6)
  - B-cell type acute leukaemia [Fatal]
  - Gastrointestinal disorder [Fatal]
  - Blood disorder [Fatal]
  - Pulmonary haemorrhage [Fatal]
  - Drug ineffective [Unknown]
  - Therapy non-responder [Unknown]
